FAERS Safety Report 18792502 (Version 2)
Quarter: 2021Q3

REPORT INFORMATION
  Report Type: Spontaneous
  Country: US (occurrence: US)
  Receive Date: 20210127
  Receipt Date: 20210722
  Transmission Date: 20211014
  Serious: Yes (Other)
  Sender: FDA-Public Use
  Company Number: US-DRREDDYS-USA/USA/21/0130732

PATIENT
  Age: 37 Year
  Sex: Female

DRUGS (2)
  1. ZENATANE [Suspect]
     Active Substance: ISOTRETINOIN
     Indication: PRODUCT USED FOR UNKNOWN INDICATION
     Dosage: RMA ISSUE DATE:7/29/2020 4:35:04 PM,8/17/2020 3:49:18 PM,3/5/2021 6:02:37 PM
     Dates: start: 20200422, end: 20200916
  2. ZENATANE [Suspect]
     Active Substance: ISOTRETINOIN
     Dosage: RMA ISSUE DATE:3/5/2021 6:02:37 PM, 4/20/2021 11:28:25 AM, 5/23/2021 12:04:42 PM
     Dates: start: 20210305

REACTIONS (2)
  - Depression [Unknown]
  - Product dose omission issue [Unknown]
